FAERS Safety Report 8022137-0 (Version None)
Quarter: 2012Q1

REPORT INFORMATION
  Report Type: 
  Country: None (occurrence: None)
  Receive Date: 20120104
  Receipt Date: 20111231
  Transmission Date: 20120608
  Serious: No
  Sender: FDA-Public Use
  Company Number: US-TEVA-315721USA

PATIENT
  Sex: Female
  Weight: 63.56 kg

DRUGS (2)
  1. CHOLESTYRAMINE [Concomitant]
     Indication: GALLBLADDER DISORDER
  2. PLAN B ONE-STEP [Suspect]
     Indication: POST COITAL CONTRACEPTION
     Dosage: 1.5 MILLIGRAM;
     Route: 048
     Dates: start: 20111230, end: 20111230

REACTIONS (2)
  - FATIGUE [None]
  - NAUSEA [None]
